FAERS Safety Report 4673141-1 (Version None)
Quarter: 2005Q2

REPORT INFORMATION
  Report Type: 
  Country: None (occurrence: None)
  Receive Date: 20050525
  Receipt Date: 20050512
  Transmission Date: 20051028
  Serious: Yes (Death)
  Sender: FDA-Public Use
  Company Number: AT-JNJFOC-20050505330

PATIENT
  Age: 22 Year
  Sex: Male

DRUGS (2)
  1. TRAMADOL HCL [Suspect]
     Route: 065
  2. DIPIDOLOR [Suspect]
     Indication: DRUG USE FOR UNKNOWN INDICATION
     Route: 065

REACTIONS (2)
  - INJURY ASPHYXIATION [None]
  - VOMITING [None]
